FAERS Safety Report 12530298 (Version 1)
Quarter: 2016Q3

REPORT INFORMATION
  Report Type: Spontaneous
  Country: US (occurrence: None)
  Receive Date: 20160705
  Receipt Date: 20160705
  Transmission Date: 20161109
  Serious: No
  Sender: FDA-Public Use
  Company Number: None

PATIENT
  Age: 35 Year
  Sex: Male
  Weight: 65.77 kg

DRUGS (11)
  1. CENTRUM MULTI-VITAMIN [Concomitant]
  2. GINSENG [Concomitant]
     Active Substance: ASIAN GINSENG
  3. VALERIAN ROOT [Concomitant]
     Active Substance: VALERIAN
  4. COQ10 [Concomitant]
     Active Substance: UBIDECARENONE
  5. GINGKO BILOBA [Concomitant]
  6. SUPER BETA PROSTATE [Concomitant]
     Active Substance: DIETARY SUPPLEMENT
  7. SLO-NIACIN [Concomitant]
     Active Substance: DIETARY SUPPLEMENT
  8. TAMSULOSIN, 0.4 MG MYLAN [Suspect]
     Active Substance: TAMSULOSIN
     Indication: URINARY RETENTION
     Route: 048
  9. FISH OIL [Concomitant]
     Active Substance: FISH OIL
  10. DUTASTERIDE. [Concomitant]
     Active Substance: DUTASTERIDE
  11. KERATIN COMPLEX [Concomitant]

REACTIONS (1)
  - Orgasm abnormal [None]

NARRATIVE: CASE EVENT DATE: 20160703
